FAERS Safety Report 6807370-5 (Version None)
Quarter: 2010Q2

REPORT INFORMATION
  Report Type: 
  Country: None (occurrence: None)
  Receive Date: 20100629
  Receipt Date: 20080910
  Transmission Date: 20101027
  Serious: No
  Sender: FDA-Public Use
  Company Number: US-PFIZER INC-2008077161

PATIENT
  Sex: Male
  Weight: 86.363 kg

DRUGS (4)
  1. VIAGRA [Suspect]
     Indication: ERECTILE DYSFUNCTION
     Route: 048
     Dates: start: 20070101
  2. ETANERCEPT [Concomitant]
  3. ACIPHEX [Concomitant]
  4. METHADONE [Concomitant]

REACTIONS (1)
  - NASAL CONGESTION [None]
